FAERS Safety Report 4941809-5 (Version None)
Quarter: 2006Q1

REPORT INFORMATION
  Report Type: 
  Country: None (occurrence: None)
  Receive Date: 20060308
  Receipt Date: 20060223
  Transmission Date: 20060701
  Serious: Yes (Hospitalization)
  Sender: FDA-Public Use
  Company Number: HQWYE016827FEB06

PATIENT
  Sex: Female

DRUGS (1)
  1. PREMPRO [Suspect]
     Indication: OOPHORECTOMY
     Dosage: 0.625MG/2.5 MG DAILY, ORAL
     Route: 048
     Dates: start: 19960101

REACTIONS (2)
  - HYPOTHYROIDISM [None]
  - SUPRAVENTRICULAR TACHYCARDIA [None]
